FAERS Safety Report 8130809-2 (Version None)
Quarter: 2012Q1

REPORT INFORMATION
  Report Type: 
  Country: None (occurrence: None)
  Receive Date: 20120213
  Receipt Date: 20120202
  Transmission Date: 20120608
  Serious: No
  Sender: FDA-Public Use
  Company Number: US-BIOGENIDEC-2012BI004109

PATIENT
  Sex: Female

DRUGS (1)
  1. AVONEX [Suspect]
     Indication: MULTIPLE SCLEROSIS
     Route: 030

REACTIONS (9)
  - INJECTION SITE PAIN [None]
  - DRUG ADMINISTERED AT INAPPROPRIATE SITE [None]
  - INJECTION SITE INFLAMMATION [None]
  - MUSCLE SPASMS [None]
  - DEPRESSION [None]
  - PAIN [None]
  - MYOSCLEROSIS [None]
  - MULTIPLE SCLEROSIS [None]
  - PARKINSON'S DISEASE [None]
